FAERS Safety Report 17570832 (Version 1)
Quarter: 2020Q1

REPORT INFORMATION
  Report Type: Spontaneous
  Country: US (occurrence: US)
  Receive Date: 20200317
  Receipt Date: 20200317
  Transmission Date: 20200409
  Serious: Yes (Hospitalization)
  Sender: FDA-Public Use
  Company Number: None

PATIENT
  Sex: Female

DRUGS (43)
  1. VITAMIN B COMPLEX [Concomitant]
     Active Substance: CYANOCOBALAMIN\DEXPANTHENOL\NIACINAMIDE\PYRIDOXINE HYDROCHLORIDE\RIBOFLAVIN 5^-PHOSPHATE SODIUM\THIAMINE HYDROCHLORIDE\VITAMIN B COMPLEX
  2. FUROSEMIDE SOL [Concomitant]
  3. DULOXETINE. [Concomitant]
     Active Substance: DULOXETINE
  4. NEURONTIN [Concomitant]
     Active Substance: GABAPENTIN
  5. HUMIRA [Suspect]
     Active Substance: ADALIMUMAB
     Indication: RHEUMATOID ARTHRITIS
     Dosage: ?          OTHER FREQUENCY:Q2WKS;?
     Route: 058
     Dates: start: 20181214
  6. CYMBALTA [Concomitant]
     Active Substance: DULOXETINE HYDROCHLORIDE
  7. HYDRALAZINE [Concomitant]
     Active Substance: HYDRALAZINE HYDROCHLORIDE
  8. METHOTREXATE. [Concomitant]
     Active Substance: METHOTREXATE
  9. PLAQUENIL [Concomitant]
     Active Substance: HYDROXYCHLOROQUINE SULFATE
  10. SULFASALAZINE DELAYED-RELEASE [Concomitant]
     Active Substance: SULFASALAZINE
  11. SYNTHROID [Concomitant]
     Active Substance: LEVOTHYROXINE SODIUM
  12. PLAQUENIL [Concomitant]
     Active Substance: HYDROXYCHLOROQUINE SULFATE
  13. PRAVASTATIN. [Concomitant]
     Active Substance: PRAVASTATIN
  14. SYNTHROID [Concomitant]
     Active Substance: LEVOTHYROXINE SODIUM
  15. METOPROLOL TARTRATE. [Concomitant]
     Active Substance: METOPROLOL TARTRATE
  16. OXYCODONE [Concomitant]
     Active Substance: OXYCODONE
  17. SMZ/TMP [Concomitant]
     Active Substance: SULFAMETHOXAZOLE\TRIMETHOPRIM
  18. CALCIUM D [Concomitant]
     Active Substance: CALCIUM\VITAMIN D
  19. METHOTREXATE. [Concomitant]
     Active Substance: METHOTREXATE
  20. DULOXETINE. [Concomitant]
     Active Substance: DULOXETINE
  21. FUROSEMIDE SOL [Concomitant]
  22. HYDRALAZINE [Concomitant]
     Active Substance: HYDRALAZINE HYDROCHLORIDE
  23. CALCIUM D [Concomitant]
     Active Substance: CALCIUM\VITAMIN D
  24. POTASSIUM [Concomitant]
     Active Substance: POTASSIUM
  25. SMZ/TMP [Concomitant]
     Active Substance: SULFAMETHOXAZOLE\TRIMETHOPRIM
  26. VITAMIN B COMPLEX [Concomitant]
     Active Substance: CYANOCOBALAMIN\DEXPANTHENOL\NIACINAMIDE\PYRIDOXINE HYDROCHLORIDE\RIBOFLAVIN 5^-PHOSPHATE SODIUM\THIAMINE HYDROCHLORIDE\VITAMIN B COMPLEX
  27. FOLIC ACID. [Concomitant]
     Active Substance: FOLIC ACID
  28. HYDROMORPHON [Concomitant]
     Active Substance: HYDROMORPHONE
  29. METHOCARBAM [Concomitant]
     Active Substance: METHOCARBAMOL
  30. METOPROLOL TARTRATE. [Concomitant]
     Active Substance: METOPROLOL TARTRATE
  31. NEURONTIN [Concomitant]
     Active Substance: GABAPENTIN
  32. SULFASALAZINE DELAYED-RELEASE [Concomitant]
     Active Substance: SULFASALAZINE
  33. FOLIC ACID. [Concomitant]
     Active Substance: FOLIC ACID
  34. METFORMIN [Concomitant]
     Active Substance: METFORMIN HYDROCHLORIDE
  35. POTASSIUM [Concomitant]
     Active Substance: POTASSIUM
  36. PRAVASTATIN. [Concomitant]
     Active Substance: PRAVASTATIN
  37. TIZANIDINE. [Concomitant]
     Active Substance: TIZANIDINE
  38. METFORMIN [Concomitant]
     Active Substance: METFORMIN HYDROCHLORIDE
  39. OXYCODONE [Concomitant]
     Active Substance: OXYCODONE
  40. TIZANIDINE. [Concomitant]
     Active Substance: TIZANIDINE
  41. CYMBALTA [Concomitant]
     Active Substance: DULOXETINE HYDROCHLORIDE
  42. HYDROMORPHON [Concomitant]
     Active Substance: HYDROMORPHONE
  43. METHOCARBAM [Concomitant]
     Active Substance: METHOCARBAMOL

REACTIONS (2)
  - Arthropod bite [None]
  - Thrombosis [None]
